FAERS Safety Report 9697724 (Version 2)
Quarter: 2013Q4

REPORT INFORMATION
  Report Type: Spontaneous
  Country: DE (occurrence: None)
  Receive Date: 20131104
  Receipt Date: 20131112
  Transmission Date: 20140711
  Serious: Yes (Life-Threatening, Hospitalization, Disabling, Other)
  Sender: FDA-Public Use
  Company Number: 2013038577

PATIENT
  Sex: Male

DRUGS (6)
  1. HAEMATE [Suspect]
     Indication: IMMUNE TOLERANCE INDUCTION
     Dosage: 1250 IU, SINCE THE LAST DOSE OF BIOSTATE ON 02-SEP-2013 AT 19:05 TREATMENT WITH HAEMATE
     Route: 042
     Dates: start: 20130903, end: 20131018
  2. ANTIHEMOPHILIC FACTOR, HUMAN RECOMBINANT [Suspect]
     Indication: HAEMOPHILIA A WITH ANTI FACTOR VIII
     Route: 042
     Dates: start: 20130115
  3. NOVOSEVEN [Suspect]
  4. CLINDAMYCIN (CLINDAMYCIN) [Concomitant]
  5. ZYVOXID (LINEZOLID) [Concomitant]
  6. FEIBA /00286701/ (FACTOR VIII (ANTIHAEMOPHILIC FACTOR)) [Concomitant]

REACTIONS (9)
  - Cerebrovascular accident [None]
  - Carotid artery stenosis [None]
  - Hydrocephalus [None]
  - Mouth haemorrhage [None]
  - Device related infection [None]
  - Blood culture positive [None]
  - Staphylococcal infection [None]
  - Fall [None]
  - Ischaemic stroke [None]
